FAERS Safety Report 7092636-7 (Version None)
Quarter: 2010Q4

REPORT INFORMATION
  Report Type: 
  Country: None (occurrence: None)
  Receive Date: 20101110
  Receipt Date: 20101101
  Transmission Date: 20110411
  Serious: Yes (Hospitalization, Other)
  Sender: FDA-Public Use
  Company Number: US-US-EMD SERONO, INC.-7009813

PATIENT
  Sex: Male

DRUGS (6)
  1. REBIF [Suspect]
     Indication: MULTIPLE SCLEROSIS
     Route: 058
     Dates: start: 20051013
  2. REBIF [Suspect]
     Route: 058
     Dates: start: 20090823, end: 20090823
  3. REBIF [Suspect]
     Route: 058
     Dates: start: 20091201
  4. REBIF [Suspect]
     Route: 058
     Dates: start: 20100501, end: 20100101
  5. REBIF [Suspect]
     Route: 058
     Dates: start: 20100101, end: 20100101
  6. REBIF [Suspect]
     Route: 058
     Dates: start: 20100101, end: 20101001

REACTIONS (9)
  - DRUG INTERACTION [None]
  - HIATUS HERNIA [None]
  - INCREASED UPPER AIRWAY SECRETION [None]
  - INJECTION SITE REACTION [None]
  - MOOD ALTERED [None]
  - PNEUMONIA ASPIRATION [None]
  - PYREXIA [None]
  - UPPER RESPIRATORY TRACT INFECTION [None]
  - URINARY TRACT INFECTION [None]
